FAERS Safety Report 23774074 (Version 1)
Quarter: 2024Q2

REPORT INFORMATION
  Report Type: Spontaneous
  Country: US (occurrence: US)
  Receive Date: 20240423
  Receipt Date: 20240423
  Transmission Date: 20240716
  Serious: Yes (Death)
  Sender: FDA-Public Use
  Company Number: US-SHIONOGI, INC-2024000969

PATIENT

DRUGS (15)
  1. FETROJA [Suspect]
     Active Substance: CEFIDEROCOL SULFATE TOSYLATE
     Indication: Drug resistance
     Dosage: 1 G, 12 HOUR
     Route: 042
  2. FETROJA [Suspect]
     Active Substance: CEFIDEROCOL SULFATE TOSYLATE
     Indication: Pseudomonas infection
     Dosage: 2 G, 8 HOUR
     Route: 042
  3. FETROJA [Suspect]
     Active Substance: CEFIDEROCOL SULFATE TOSYLATE
     Indication: Abdominal infection
     Dosage: 2 G, 12 HOUR
     Route: 042
  4. FETROJA [Suspect]
     Active Substance: CEFIDEROCOL SULFATE TOSYLATE
     Indication: Pneumonia
  5. POLYMYXIN B [Suspect]
     Active Substance: POLYMYXIN B
     Indication: Drug resistance
     Dosage: 15000 IU/KG
     Route: 042
  6. POLYMYXIN B [Suspect]
     Active Substance: POLYMYXIN B
     Indication: Pseudomonas infection
     Dosage: 15000 IU/KG
     Route: 042
  7. POLYMYXIN B [Suspect]
     Active Substance: POLYMYXIN B
     Indication: Abdominal infection
  8. POLYMYXIN B [Suspect]
     Active Substance: POLYMYXIN B
     Indication: Pneumonia
  9. AZTREONAM [Suspect]
     Active Substance: AZTREONAM
     Indication: Drug resistance
     Dosage: 2 G, 12 HOUR
     Route: 042
  10. AZTREONAM [Suspect]
     Active Substance: AZTREONAM
     Indication: Pseudomonas infection
  11. AZTREONAM [Suspect]
     Active Substance: AZTREONAM
     Indication: Pneumonia
  12. AMIKACIN [Concomitant]
     Active Substance: AMIKACIN
     Indication: Drug resistance
     Dosage: UNK (DOSED BY LEVEL)
     Route: 042
  13. AMIKACIN [Concomitant]
     Active Substance: AMIKACIN
     Indication: Pseudomonas infection
     Dosage: 500 MG, 12 HOUR
  14. AMIKACIN [Concomitant]
     Active Substance: AMIKACIN
     Indication: Abdominal infection
  15. AMIKACIN [Concomitant]
     Active Substance: AMIKACIN
     Indication: Pneumonia

REACTIONS (1)
  - Death [Fatal]
